FAERS Safety Report 8972248 (Version 1)
Quarter: 2012Q4

REPORT INFORMATION
  Report Type: 
  Country: DE (occurrence: DE)
  Receive Date: 20121218
  Receipt Date: 20121218
  Transmission Date: 20130627
  Serious: Yes (Life-Threatening, Hospitalization)
  Sender: FDA-Public Use
  Company Number: DE-ROCHE-1170821

PATIENT
  Sex: Female
  Weight: 50 kg

DRUGS (3)
  1. BEVACIZUMAB [Suspect]
     Indication: OVARIAN CANCER
     Route: 042
     Dates: start: 20120426, end: 20120703
  2. CARBOPLATIN [Concomitant]
     Indication: OVARIAN CANCER
     Route: 042
     Dates: start: 20120426, end: 20120703
  3. PACLITAXEL [Concomitant]
     Indication: OVARIAN CANCER
     Route: 042
     Dates: start: 20120426, end: 20120703

REACTIONS (4)
  - Intestinal perforation [Not Recovered/Not Resolved]
  - Sepsis [Unknown]
  - Ileostomy [Unknown]
  - Impaired healing [Unknown]
